APPROVED DRUG PRODUCT: TIAMATE
Active Ingredient: DILTIAZEM MALATE
Strength: EQ 120MG HYDROCHLORIDE
Dosage Form/Route: TABLET, EXTENDED RELEASE;ORAL
Application: N020506 | Product #001
Applicant: MERCK AND CO INC
Approved: Oct 4, 1996 | RLD: No | RS: No | Type: DISCN